FAERS Safety Report 8798197 (Version 1)
Quarter: 2012Q4

REPORT INFORMATION
  Report Type: 
  Country: US (occurrence: US)
  Receive Date: 20120920
  Receipt Date: 20120920
  Transmission Date: 20130627
  Serious: No
  Sender: FDA-Public Use
  Company Number: US-BAUSCH-2011BL008864

PATIENT
  Age: 71 Year
  Sex: Female

DRUGS (4)
  1. ERYTHROMYCIN [Suspect]
     Indication: CORNEAL ABRASION
     Dosage: daily dose: 1 RIBBON
     Route: 047
     Dates: start: 20111108, end: 20111108
  2. ERYTHROMYCIN [Suspect]
     Indication: OFF LABEL USE
  3. LUMIGAN [Concomitant]
     Indication: GLAUCOMA
  4. LYRICA [Concomitant]

REACTIONS (1)
  - Eye irritation [Recovered/Resolved]
